FAERS Safety Report 4295252-5 (Version None)
Quarter: 2004Q1

REPORT INFORMATION
  Report Type: 
  Country: None (occurrence: None)
  Receive Date: 20040216
  Receipt Date: 20030429
  Transmission Date: 20041129
  Serious: Yes (Other)
  Sender: FDA-Public Use
  Company Number: US-GLAXOSMITHKLINE-A0406698A

PATIENT
  Age: 33 Year
  Sex: Female

DRUGS (3)
  1. LAMICTAL [Suspect]
     Dosage: 100MG SEE DOSAGE TEXT
     Route: 048
     Dates: start: 20020301
  2. TOPAMAX [Concomitant]
  3. OXYBUTYNIN [Concomitant]

REACTIONS (3)
  - DRUG INEFFECTIVE [None]
  - GRAND MAL CONVULSION [None]
  - PHARMACEUTICAL PRODUCT COMPLAINT [None]
